FAERS Safety Report 10174319 (Version 1)
Quarter: 2014Q2

REPORT INFORMATION
  Report Type: Spontaneous
  Country: US (occurrence: None)
  Receive Date: 20140514
  Receipt Date: 20140514
  Transmission Date: 20141212
  Serious: Yes (Hospitalization)
  Sender: FDA-Public Use
  Company Number: None

PATIENT
  Age: 31 Year
  Sex: Female

DRUGS (1)
  1. METHYLPREDNISOLONE [Suspect]
     Indication: ABSCESS
     Dosage: 1000 MG DAILY IV
     Route: 042
     Dates: start: 20120926, end: 20120927

REACTIONS (1)
  - Anaphylactic reaction [None]
